FAERS Safety Report 5253958-5 (Version None)
Quarter: 2007Q1

REPORT INFORMATION
  Report Type: 
  Country: None (occurrence: None)
  Receive Date: 20070228
  Receipt Date: 20070228
  Transmission Date: 20070707
  Serious: Yes (Other)
  Sender: FDA-Public Use
  Company Number: None

PATIENT
  Age: 59 Year
  Sex: Male
  Weight: 102.0593 kg

DRUGS (3)
  1. PROTOPIC [Suspect]
     Indication: DRY SKIN
     Dosage: 1 DROP ONCE CONTACT
     Dates: start: 20070216
  2. ALLOPURINOL [Concomitant]
  3. TOPROL-XL [Concomitant]

REACTIONS (5)
  - ACCIDENTAL EXPOSURE [None]
  - HYPOAESTHESIA ORAL [None]
  - INCORRECT ROUTE OF DRUG ADMINISTRATION [None]
  - ORAL DYSAESTHESIA [None]
  - PARAESTHESIA ORAL [None]
